FAERS Safety Report 11826305 (Version 3)
Quarter: 2017Q3

REPORT INFORMATION
  Report Type: Spontaneous
  Country: CA (occurrence: CA)
  Receive Date: 20151211
  Receipt Date: 20170717
  Transmission Date: 20171127
  Serious: Yes (Other)
  Sender: FDA-Public Use
  Company Number: CA-009507513-1507CAN012816

PATIENT
  Sex: Female

DRUGS (5)
  1. XELODA [Concomitant]
     Active Substance: CAPECITABINE
     Dosage: UNK
  2. TEMODAL [Suspect]
     Active Substance: TEMOZOLOMIDE
     Dosage: 100 MG, UNK
     Route: 048
  3. TEMODAL [Suspect]
     Active Substance: TEMOZOLOMIDE
     Indication: NEUROENDOCRINE BREAST TUMOUR
     Dosage: 200 MG, ONCE DAILY ON DAYS 10-14 OF CYCLE
     Route: 048
     Dates: start: 20140626, end: 2015
  4. TEMODAL [Suspect]
     Active Substance: TEMOZOLOMIDE
     Dosage: 80 MG, DAILY X 5 DAYS
     Route: 048
     Dates: start: 20140626
  5. TEMODAL [Suspect]
     Active Substance: TEMOZOLOMIDE
     Dosage: 200 MG ONCE DAILY, ON DAYS 10-14 OF CYCLE
     Route: 048
     Dates: start: 2015

REACTIONS (4)
  - Haemoglobin decreased [Unknown]
  - Thrombocytopenia [Unknown]
  - Neoplasm progression [Unknown]
  - Metastases to liver [Unknown]

NARRATIVE: CASE EVENT DATE: 2015
